FAERS Safety Report 23522286 (Version 2)
Quarter: 2024Q4

REPORT INFORMATION
  Report Type: Report from Study
  Country: CA (occurrence: CA)
  Receive Date: 20240214
  Receipt Date: 20241003
  Transmission Date: 20250115
  Serious: Yes (Other)
  Sender: DR REDDYS
  Company Number: CA-drreddys-CLI/CAN/22/0157348

PATIENT
  Age: 77 Year
  Sex: Female

DRUGS (3)
  1. ZOLEDRONIC ACID [Suspect]
     Active Substance: ZOLEDRONIC ACID
     Indication: Osteoporosis
     Dosage: 5MG/100ML
     Route: 042
     Dates: start: 20220518
  2. ZOLEDRONIC ACID [Suspect]
     Active Substance: ZOLEDRONIC ACID
     Dosage: 5MG/100ML
     Route: 042
     Dates: start: 20240314
  3. STELARA [Concomitant]
     Active Substance: USTEKINUMAB
     Indication: Chronic disease
     Dosage: Q8 WEEKS
     Route: 058
     Dates: start: 20210625

REACTIONS (4)
  - Knee arthroplasty [Recovering/Resolving]
  - Nausea [Unknown]
  - Malaise [Unknown]
  - Eye infection [Unknown]
